FAERS Safety Report 8975040 (Version 2)
Quarter: 2013Q1

REPORT INFORMATION
  Report Type: Spontaneous
  Country: US (occurrence: US)
  Receive Date: 20121220
  Receipt Date: 20130212
  Transmission Date: 20140127
  Serious: Yes (Death)
  Sender: FDA-Public Use
  Company Number: US-ELI_LILLY_AND_COMPANY-US201107007282

PATIENT
  Age: 78 Year
  Sex: Female

DRUGS (3)
  1. FORTEO [Suspect]
     Indication: OSTEOPOROSIS
     Dosage: UNK UNK, QD
     Route: 065
  2. FORTEO [Suspect]
     Dosage: UNK UNK, QD
     Route: 065
  3. COUMADIN [Concomitant]

REACTIONS (5)
  - Terminal state [Fatal]
  - Gallbladder operation [Unknown]
  - Sinusitis [Not Recovered/Not Resolved]
  - Somnolence [Unknown]
  - Dysphonia [Unknown]
